FAERS Safety Report 25139723 (Version 2)
Quarter: 2025Q3

REPORT INFORMATION
  Report Type: Spontaneous
  Country: JP (occurrence: JP)
  Receive Date: 20250331
  Receipt Date: 20250711
  Transmission Date: 20251021
  Serious: Yes (Death)
  Sender: ASTELLAS
  Company Number: JP-ASTELLAS-2025-AER-017984

PATIENT
  Sex: Male

DRUGS (6)
  1. VYLOY [Suspect]
     Active Substance: ZOLBETUXIMAB-CLZB
     Indication: Gastric cancer
     Route: 042
  2. VYLOY [Suspect]
     Active Substance: ZOLBETUXIMAB-CLZB
     Route: 042
     Dates: start: 20241203, end: 20250318
  3. OXALIPLATIN [Suspect]
     Active Substance: OXALIPLATIN
     Indication: Product used for unknown indication
     Route: 065
  4. OXALIPLATIN [Suspect]
     Active Substance: OXALIPLATIN
     Route: 065
  5. GIMERACIL\OTERACIL\TEGAFUR [Suspect]
     Active Substance: GIMERACIL\OTERACIL POTASSIUM\TEGAFUR
     Indication: Product used for unknown indication
     Route: 065
  6. GIMERACIL\OTERACIL\TEGAFUR [Suspect]
     Active Substance: GIMERACIL\OTERACIL POTASSIUM\TEGAFUR
     Route: 065

REACTIONS (1)
  - Cerebral infarction [Fatal]

NARRATIVE: CASE EVENT DATE: 20250325
